FAERS Safety Report 7369490-9 (Version None)
Quarter: 2011Q1

REPORT INFORMATION
  Report Type: 
  Country: None (occurrence: None)
  Receive Date: 20110323
  Receipt Date: 20110224
  Transmission Date: 20110831
  Serious: No
  Sender: FDA-Public Use
  Company Number: US-B.I. PHARMACEUTICALS,INC./RIDGEFIELD-2011-BP-06668BP

PATIENT
  Sex: Female

DRUGS (6)
  1. METOPROLOL [Concomitant]
     Route: 048
  2. AMIODARONE HCL [Concomitant]
     Route: 048
  3. TRIAMTERENE [Concomitant]
     Route: 048
  4. PRADAXA [Suspect]
     Dosage: 150 MG
     Route: 048
     Dates: start: 20110203
  5. ASPIRIN [Concomitant]
     Indication: PROPHYLAXIS
     Dosage: 81 MG
     Route: 048
  6. LEVOTHYROXINE SODIUM [Concomitant]
     Indication: HYPOTHYROIDISM
     Route: 048

REACTIONS (3)
  - FATIGUE [None]
  - JOINT SWELLING [None]
  - ASTHENIA [None]
